FAERS Safety Report 8814493 (Version 2)
Quarter: 2012Q4

REPORT INFORMATION
  Report Type: 
  Country: US (occurrence: US)
  Receive Date: 20120928
  Receipt Date: 20121114
  Transmission Date: 20130627
  Serious: Yes (Other)
  Sender: FDA-Public Use
  Company Number: US-BAYER-2012-099872

PATIENT
  Age: 21 Year
  Sex: Female
  Weight: 49.43 kg

DRUGS (2)
  1. MIRENA [Suspect]
     Indication: CONTRACEPTION
     Dosage: 20 mcg/24hr, CONT
     Route: 015
     Dates: start: 20110404, end: 20120720
  2. MIRENA [Suspect]
     Indication: CONTRACEPTION
     Dosage: 20 mcg/24hr, CONT
     Dates: start: 20110404, end: 20120720

REACTIONS (3)
  - Genital haemorrhage [Recovering/Resolving]
  - Device dislocation [None]
  - Abdominal pain lower [Recovering/Resolving]
